FAERS Safety Report 9865780 (Version 1)
Quarter: 2014Q1

REPORT INFORMATION
  Report Type: Spontaneous
  Country: US (occurrence: US)
  Receive Date: 20140203
  Receipt Date: 20140203
  Transmission Date: 20141002
  Serious: No
  Sender: FDA-Public Use
  Company Number: US-ALLERGAN-1310727US

PATIENT
  Age: 83 Year
  Sex: Female

DRUGS (7)
  1. RESTASIS [Suspect]
     Indication: DRY EYE
     Dosage: 2 GTT, BID
     Route: 047
  2. LUMIGAN 0.01% [Concomitant]
     Indication: GLAUCOMA
     Dosage: 2 GTT, QHS
     Route: 047
  3. BETIMOL                            /00371201/ [Concomitant]
     Indication: GLAUCOMA
     Dosage: 2 GTT, QAM
     Route: 047
  4. COUMADIN                           /00014802/ [Concomitant]
     Indication: AORTIC VALVE REPLACEMENT
     Dosage: UNK
  5. BLOOD PRESSURE MEDICATION [Concomitant]
     Indication: HYPERTENSION
     Dosage: UNK
  6. ASA [Concomitant]
     Indication: PRODUCT USED FOR UNKNOWN INDICATION
     Dosage: 81 MG, QD
     Route: 048
  7. TYLENOL                            /00020001/ [Concomitant]
     Indication: HEADACHE
     Dosage: UNK

REACTIONS (2)
  - Lacrimation decreased [Unknown]
  - Drug ineffective [Unknown]
